FAERS Safety Report 7908950-6 (Version None)
Quarter: 2011Q4

REPORT INFORMATION
  Report Type: 
  Country: None (occurrence: None)
  Receive Date: 20111108
  Receipt Date: 20111031
  Transmission Date: 20120403
  Serious: Yes (Hospitalization)
  Sender: FDA-Public Use
  Company Number: 2011SP040711

PATIENT
  Age: 38 Year
  Sex: Male

DRUGS (12)
  1. ETISEDAN [Concomitant]
  2. CYSVON [Concomitant]
  3. MOHRUS TAPE [Concomitant]
  4. CLONAZEPAM [Concomitant]
  5. DEPAKENE [Concomitant]
  6. DEPROMEL [Concomitant]
  7. SEROQUEL [Concomitant]
  8. MEILAX [Concomitant]
  9. REMERON [Suspect]
     Indication: DEPRESSIVE SYMPTOM
     Dosage: 15 MG;QD;PO
     Route: 048
     Dates: start: 20110426
  10. REMERON [Suspect]
     Indication: INSOMNIA
     Dosage: 15 MG;QD;PO
     Route: 048
     Dates: start: 20110426
  11. LITIOMAL [Concomitant]
  12. INDOMETHACIN [Concomitant]

REACTIONS (6)
  - REFUSAL OF TREATMENT BY PATIENT [None]
  - ANGER [None]
  - MULTIPLE DRUG OVERDOSE INTENTIONAL [None]
  - SUICIDE ATTEMPT [None]
  - MOOD ALTERED [None]
  - MANIA [None]
